FAERS Safety Report 8925277 (Version 3)
Quarter: 2013Q1

REPORT INFORMATION
  Report Type: Spontaneous
  Country: US (occurrence: US)
  Receive Date: 20121126
  Receipt Date: 20130313
  Transmission Date: 20140127
  Serious: Yes (Death, Hospitalization, Other)
  Sender: FDA-Public Use
  Company Number: US-ASTELLAS-2012US011358

PATIENT
  Age: 62 Year
  Sex: Male

DRUGS (3)
  1. XTANDI [Suspect]
     Indication: PROSTATE CANCER METASTATIC
     Dosage: UNK
     Route: 065
     Dates: start: 201209
  2. PAXIL [Suspect]
     Indication: PRODUCT USED FOR UNKNOWN INDICATION
     Dosage: UNK
     Route: 065
  3. SAMARIUM (153 SM) LEXIDRONAM [Concomitant]
     Indication: PROSTATE CANCER METASTATIC
     Dosage: UNK
     Route: 065

REACTIONS (9)
  - Death [Fatal]
  - Neuropathy peripheral [Unknown]
  - Anaemia of chronic disease [Unknown]
  - Glucose tolerance impaired [Unknown]
  - Cancer pain [Unknown]
  - Pain [Unknown]
  - Spinal cord compression [Unknown]
  - Leukopenia [Recovered/Resolved]
  - Platelet count decreased [Recovered/Resolved]
